FAERS Safety Report 6315303-3 (Version None)
Quarter: 2009Q3

REPORT INFORMATION
  Report Type: 
  Country: None (occurrence: None)
  Receive Date: 20090819
  Receipt Date: 20090806
  Transmission Date: 20100115
  Serious: Yes (Death, Other)
  Sender: FDA-Public Use
  Company Number: US-JNJFOC-20080302109

PATIENT
  Age: 32 Year
  Sex: Male

DRUGS (4)
  1. INFLIXIMAB [Suspect]
     Indication: CROHN'S DISEASE
     Route: 042
  2. MERCAPTOPURINE [Suspect]
     Indication: CROHN'S DISEASE
  3. CORTICOSTEROIDS [Suspect]
     Indication: ABDOMINAL PAIN
     Route: 048
  4. CORTICOSTEROIDS [Suspect]
     Route: 042

REACTIONS (2)
  - MUCORMYCOSIS [None]
  - SEPSIS [None]
